FAERS Safety Report 13851843 (Version 1)
Quarter: 2017Q3

REPORT INFORMATION
  Report Type: Spontaneous
  Country: US (occurrence: US)
  Receive Date: 20170809
  Receipt Date: 20170809
  Transmission Date: 20171127
  Serious: No
  Sender: FDA-Public Use
  Company Number: US-ROCHE-430921

PATIENT
  Age: 62 Year
  Sex: Female
  Weight: 62.7 kg

DRUGS (6)
  1. CALCIUM [Concomitant]
     Active Substance: CALCIUM
     Route: 065
  2. SYNTHROID [Concomitant]
     Active Substance: LEVOTHYROXINE SODIUM
     Route: 065
  3. LISINOPRIL. [Concomitant]
     Active Substance: LISINOPRIL
     Dosage: DRUG REPORTED AS LASINOPRIL
     Route: 065
  4. VITAMIN D [Concomitant]
     Active Substance: CHOLECALCIFEROL
     Dosage: DRUG NAME: VITAMIN D
     Route: 065
  5. BONIVA [Suspect]
     Active Substance: IBANDRONATE SODIUM
     Indication: OSTEOPOROSIS
     Route: 048
  6. VITEX [Concomitant]
     Indication: HOT FLUSH
     Dosage: WAS A NUTRITIONAL SUPPLEMENT FOR HOT FLUSHES
     Route: 065

REACTIONS (4)
  - Diarrhoea [Unknown]
  - Dyspepsia [Not Recovered/Not Resolved]
  - Dental restoration failure [Unknown]
  - Acne [Not Recovered/Not Resolved]

NARRATIVE: CASE EVENT DATE: 200612
